FAERS Safety Report 5504951-6 (Version None)
Quarter: 2007Q4

REPORT INFORMATION
  Report Type: 
  Country: None (occurrence: None)
  Receive Date: 20071102
  Receipt Date: 20071022
  Transmission Date: 20080405
  Serious: Yes (Hospitalization, Other)
  Sender: FDA-Public Use
  Company Number: CA-NOVOPROD-268724

PATIENT

DRUGS (5)
  1. NIASTASE [Suspect]
     Indication: HAEMORRHAGE
     Dosage: 4.8 MG, UNK
     Route: 042
  2. PLATELETS [Concomitant]
     Dosage: 55 U, UNK
  3. CRYOPRECIPITATES [Concomitant]
     Dosage: 16 U, UNK
  4. RED BLOOD CELLS [Concomitant]
     Dosage: 4 U, UNK
  5. FRESH FROZEN PLASMA [Concomitant]
     Dosage: 24 U, UNK

REACTIONS (1)
  - HEMIPARESIS [None]
